FAERS Safety Report 8459865-9 (Version None)
Quarter: 2012Q2

REPORT INFORMATION
  Report Type: 
  Country: None (occurrence: None)
  Receive Date: 20120622
  Receipt Date: 20120615
  Transmission Date: 20120825
  Serious: Yes (Other)
  Sender: FDA-Public Use
  Company Number: PHEH2012US012085

PATIENT
  Sex: Male

DRUGS (1)
  1. GLEEVEC [Suspect]

REACTIONS (8)
  - SPLEEN DISORDER [None]
  - INTRA-ABDOMINAL PRESSURE INCREASED [None]
  - SPLENIC RUPTURE [None]
  - SPLENOSIS [None]
  - GASTROINTESTINAL STROMAL TUMOUR [None]
  - WEIGHT DECREASED [None]
  - ABDOMINAL MASS [None]
  - ASTHENIA [None]
